FAERS Safety Report 8413864-1 (Version None)
Quarter: 2012Q2

REPORT INFORMATION
  Report Type: 
  Country: None (occurrence: None)
  Receive Date: 20120323
  Receipt Date: 20110503
  Transmission Date: 20120825
  Serious: Yes (Other)
  Sender: FDA-Public Use
  Company Number: 163-21880-11042056

PATIENT
  Sex: Male

DRUGS (12)
  1. DEXAMETHASONE [Concomitant]
  2. METOPROLOL (METOPROLOL) (TABLETS) [Concomitant]
  3. REVLIMID [Suspect]
     Indication: MULTIPLE MYELOMA
     Dosage: 10 MG, 1 IN 1 D, PO, 10 MG, 1 IN 1 D, PO, 5 MG, 1 IN 1 D, PO
     Route: 048
     Dates: start: 20091201
  4. REVLIMID [Suspect]
     Indication: MULTIPLE MYELOMA
     Dosage: 10 MG, 1 IN 1 D, PO, 10 MG, 1 IN 1 D, PO, 5 MG, 1 IN 1 D, PO
     Route: 048
     Dates: start: 20110401
  5. REVLIMID [Suspect]
     Indication: MULTIPLE MYELOMA
     Dosage: 10 MG, 1 IN 1 D, PO, 10 MG, 1 IN 1 D, PO, 5 MG, 1 IN 1 D, PO
     Route: 048
     Dates: start: 20110308, end: 20110414
  6. MULTIVITAMINS (MULTIVITAMINS) (TABLETS) [Concomitant]
  7. VICODIN [Concomitant]
  8. DESYREL [Concomitant]
  9. ZOMETA [Concomitant]
  10. ASPIRIN [Concomitant]
  11. CIPRO [Concomitant]
  12. LIPITOR [Concomitant]

REACTIONS (7)
  - HEART RATE DECREASED [None]
  - FATIGUE [None]
  - CONSTIPATION [None]
  - DYSPNOEA [None]
  - BLOOD COUNT ABNORMAL [None]
  - RHINORRHOEA [None]
  - CONFUSIONAL STATE [None]
